FAERS Safety Report 24995943 (Version 1)
Quarter: 2025Q1

REPORT INFORMATION
  Report Type: Spontaneous
  Country: US (occurrence: US)
  Receive Date: 20250221
  Receipt Date: 20250221
  Transmission Date: 20250409
  Serious: No
  Sender: CATALYST PHARMA
  Company Number: US-CATALYST PHARMACEUTICALS-US-CATA-24-01284

PATIENT
  Sex: Male
  Weight: 49.193 kg

DRUGS (6)
  1. AGAMREE [Suspect]
     Active Substance: VAMOROLONE
     Indication: Duchenne muscular dystrophy
     Dosage: 7.4 ML ONCE DAILY MONDAY THROUGH SATURDAY
     Route: 048
     Dates: start: 20240315
  2. TYLENOL EXTRA STRENGTH [Concomitant]
     Active Substance: ACETAMINOPHEN
     Indication: Pyrexia
     Route: 065
  3. TYLENOL EXTRA STRENGTH [Concomitant]
     Active Substance: ACETAMINOPHEN
     Indication: Pain
  4. ADVIL [Concomitant]
     Active Substance: IBUPROFEN
     Indication: Pyrexia
     Route: 065
  5. ADVIL [Concomitant]
     Active Substance: IBUPROFEN
     Indication: Pain
  6. VITAMIN B12 [Concomitant]
     Active Substance: CYANOCOBALAMIN
     Indication: Hypovitaminosis
     Dosage: 2.5 MG DAILY
     Route: 065

REACTIONS (3)
  - Oral herpes [Not Recovered/Not Resolved]
  - Gingival erythema [Not Recovered/Not Resolved]
  - Gingival discomfort [Not Recovered/Not Resolved]

NARRATIVE: CASE EVENT DATE: 20240101
